FAERS Safety Report 5150810-0 (Version None)
Quarter: 2006Q4

REPORT INFORMATION
  Report Type: 
  Country: None (occurrence: None)
  Receive Date: 20061108
  Receipt Date: 20061102
  Transmission Date: 20070319
  Serious: Yes (Death)
  Sender: FDA-Public Use
  Company Number: 2006-149782-NL

PATIENT
  Sex: Male

DRUGS (1)
  1. ETONOGESTREL [Suspect]
     Dosage: DF, TRANSPLACENTAL
     Route: 064
     Dates: start: 20051026, end: 20060220

REACTIONS (3)
  - DEATH NEONATAL [None]
  - DRUG EXPOSURE DURING PREGNANCY [None]
  - PREMATURE BABY [None]
